FAERS Safety Report 12170822 (Version 1)
Quarter: 2016Q1

REPORT INFORMATION
  Report Type: Spontaneous
  Country: US (occurrence: US)
  Receive Date: 20160311
  Receipt Date: 20160311
  Transmission Date: 20160526
  Serious: No
  Sender: FDA-Public Use
  Company Number: US-AUROBINDO-AUR-APU-2015-11362

PATIENT
  Age: 65 Year
  Sex: Female

DRUGS (1)
  1. AMOXICILLIN AND CLAVULANATE POTASSIUM TABLETS USP  875 MG/125 MG [Suspect]
     Active Substance: AMOXICILLIN\CLAVULANATE POTASSIUM
     Indication: SINUSITIS
     Dosage: ONE TABLET ON THE FIRST DAY AND 2 TABLETS FROM THE SECOND DAY
     Route: 065
     Dates: start: 20151201

REACTIONS (2)
  - Migraine [Not Recovered/Not Resolved]
  - Product substitution issue [Not Recovered/Not Resolved]
